FAERS Safety Report 7106962-6 (Version None)
Quarter: 2010Q4

REPORT INFORMATION
  Report Type: 
  Country: None (occurrence: None)
  Receive Date: 20101116
  Receipt Date: 20100901
  Transmission Date: 20110411
  Serious: No
  Sender: FDA-Public Use
  Company Number: US-ABBOTT-10P-163-0668879-00

PATIENT

DRUGS (1)
  1. SIMCOR [Suspect]
     Indication: PRODUCT USED FOR UNKNOWN INDICATION
     Dosage: 500/20
     Dates: start: 20100801

REACTIONS (6)
  - CHEST DISCOMFORT [None]
  - DYSPNOEA [None]
  - ERYTHEMA [None]
  - LIP SWELLING [None]
  - PRURITUS [None]
  - SKIN BURNING SENSATION [None]
